FAERS Safety Report 11280076 (Version 2)
Quarter: 2015Q3

REPORT INFORMATION
  Report Type: Spontaneous
  Country: US (occurrence: US)
  Receive Date: 20150717
  Receipt Date: 20150804
  Transmission Date: 20151125
  Serious: Yes (Other)
  Sender: FDA-Public Use
  Company Number: US-AKORN PHARMACEUTICALS-2015AKN00396

PATIENT
  Age: 16 Year
  Sex: Male
  Weight: 86.17 kg

DRUGS (2)
  1. ZYRTEC [Concomitant]
     Active Substance: CETIRIZINE HYDROCHLORIDE
  2. MYORISAN [Suspect]
     Active Substance: ISOTRETINOIN
     Indication: ACNE
     Dosage: 40 MG, 2X/DAY
     Dates: start: 20150527, end: 20150624

REACTIONS (2)
  - Hallucination, auditory [Unknown]
  - Hallucination, visual [Unknown]

NARRATIVE: CASE EVENT DATE: 201506
